FAERS Safety Report 16807868 (Version 7)
Quarter: 2022Q1

REPORT INFORMATION
  Report Type: Spontaneous
  Country: GB (occurrence: GB)
  Receive Date: 20190915
  Receipt Date: 20220315
  Transmission Date: 20220423
  Serious: Yes (Death, Congenital Anomaly, Other)
  Sender: FDA-Public Use
  Company Number: PHHY2019GB210733

PATIENT
  Sex: Male
  Weight: 2.85 kg

DRUGS (17)
  1. ABACAVIR SULFATE\LAMIVUDINE [Suspect]
     Active Substance: ABACAVIR SULFATE\LAMIVUDINE
     Indication: Foetal exposure during pregnancy
     Dosage: MOTHER DOSE:1 DF, QD (1 DF, QD, TAB PER CAPS (600/300 MG))
     Route: 064
  2. ABACAVIR SULFATE\LAMIVUDINE [Suspect]
     Active Substance: ABACAVIR SULFATE\LAMIVUDINE
     Dosage: MOTHER DOSE: 400 MG, QD
     Route: 064
  3. NIFEDIPINE [Suspect]
     Active Substance: NIFEDIPINE
     Indication: Foetal exposure during pregnancy
     Dosage: UNK
     Route: 064
  4. NEVIRAPINE [Suspect]
     Active Substance: NEVIRAPINE
     Indication: Foetal exposure during pregnancy
     Dosage: MATERNAL DOSE: 400 MG, QD
     Route: 064
  5. LABETALOL [Suspect]
     Active Substance: LABETALOL\LABETALOL HYDROCHLORIDE
     Indication: Foetal exposure during pregnancy
     Dosage: MATERNAL DOSE: 1 DOSAGE FORM
     Route: 064
  6. CHOLECALCIFEROL [Suspect]
     Active Substance: CHOLECALCIFEROL
     Indication: Foetal exposure during pregnancy
     Dosage: UNK
     Route: 064
  7. CHOLECALCIFEROL [Suspect]
     Active Substance: CHOLECALCIFEROL
     Dosage: UNK
     Route: 064
  8. CHOLECALCIFEROL [Suspect]
     Active Substance: CHOLECALCIFEROL
     Dosage: UNKNN DOSGE REGIME FOR 1 TRIMESTER
     Route: 064
  9. ERGOCALCIFEROL [Suspect]
     Active Substance: ERGOCALCIFEROL
     Indication: Foetal exposure during pregnancy
     Dosage: UNK
     Route: 064
  10. LAMIVUDINE AND ZIDOVUDINE [Suspect]
     Active Substance: LAMIVUDINE\ZIDOVUDINE
     Indication: HIV infection
     Dosage: 900 MG, QD, 600MG/ 300 MG)
     Route: 064
  11. COMBIVIR [Suspect]
     Active Substance: LAMIVUDINE\ZIDOVUDINE
     Indication: Foetal exposure during pregnancy
     Dosage: 900 MG, QD
     Route: 064
  12. COMBIVIR [Suspect]
     Active Substance: LAMIVUDINE\ZIDOVUDINE
     Indication: HIV infection
     Dosage: 900 MG, QD,(600MG/ 300 MG)
     Route: 064
  13. ASPIRIN [Suspect]
     Active Substance: ASPIRIN
     Indication: Foetal exposure during pregnancy
     Dosage: UNK
     Route: 064
  14. ASPIRIN [Suspect]
     Active Substance: ASPIRIN
     Dosage: MATERNAL DOSE: 1 DF,IN FIRST TRIMESTER
     Route: 064
  15. LAMIVUDINE [Suspect]
     Active Substance: LAMIVUDINE
     Indication: Foetal exposure during pregnancy
     Dosage: MATERNAL DOSE: 1 DOSAGE FORM, QD
     Route: 064
  16. VIRAMUNE [Suspect]
     Active Substance: NEVIRAPINE
     Indication: Foetal exposure during pregnancy
     Dosage: MATERNAL DOSE: 400 MG QD
     Route: 064
  17. VITAMIN D [Concomitant]
     Active Substance: VITAMIN D NOS
     Indication: Foetal exposure during pregnancy
     Dosage: UNK
     Route: 064

REACTIONS (13)
  - Polydactyly [Fatal]
  - Pulmonary hypertension [Fatal]
  - Atrioventricular septal defect [Fatal]
  - Foetal exposure during pregnancy [Fatal]
  - Gene mutation [Fatal]
  - Trisomy 21 [Fatal]
  - Dandy-Walker syndrome [Fatal]
  - Congenital central nervous system anomaly [Fatal]
  - Macrocephaly [Fatal]
  - Speech disorder developmental [Fatal]
  - Neurodevelopmental disorder [Fatal]
  - Attention deficit hyperactivity disorder [Fatal]
  - Ataxia [Fatal]

NARRATIVE: CASE EVENT DATE: 20190816
